FAERS Safety Report 4738340-9 (Version None)
Quarter: 2005Q3

REPORT INFORMATION
  Report Type: 
  Country: None (occurrence: None)
  Receive Date: 20050803
  Receipt Date: 20050726
  Transmission Date: 20060218
  Serious: Yes (Hospitalization)
  Sender: FDA-Public Use
  Company Number: 2005-07-1782

PATIENT

DRUGS (4)
  1. INTRON A [Suspect]
     Indication: METASTATIC RENAL CELL CARCINOMA
     Dosage: SUBCUTANEOUS
     Route: 058
  2. INTERLEUKIN-2 INJECTABLE [Suspect]
     Indication: METASTATIC RENAL CELL CARCINOMA
     Dosage: SUBCUTANEOUS
     Route: 058
  3. 5-FU INJECTABLE [Suspect]
     Indication: METASTATIC RENAL CELL CARCINOMA
     Dosage: INTRAVENOUS
     Route: 042
  4. ENALAPRIL [Concomitant]

REACTIONS (4)
  - ASTHENIA [None]
  - FEBRILE NEUTROPENIA [None]
  - MALAISE [None]
  - ORAL INTAKE REDUCED [None]
